FAERS Safety Report 8045160-9 (Version None)
Quarter: 2012Q1

REPORT INFORMATION
  Report Type: 
  Country: None (occurrence: None)
  Receive Date: 20120111
  Receipt Date: 20120111
  Transmission Date: 20120608
  Serious: No
  Sender: FDA-Public Use
  Company Number: None

PATIENT
  Sex: Female
  Weight: 71.2147 kg

DRUGS (1)
  1. SIMVASTATIN [Suspect]
     Indication: BLOOD CHOLESTEROL
     Dosage: ONE PER DAY FOR YEARS

REACTIONS (3)
  - HYPOAESTHESIA [None]
  - ARTHRALGIA [None]
  - MUSCULOSKELETAL PAIN [None]
